FAERS Safety Report 10549324 (Version 1)
Quarter: 2014Q4

REPORT INFORMATION
  Report Type: Spontaneous
  Country: US (occurrence: None)
  Receive Date: 20141016
  Receipt Date: 20141016
  Transmission Date: 20150529
  Serious: No
  Sender: FDA-Public Use
  Company Number: CABO-14004488

PATIENT
  Age: 67 Year
  Sex: Male

DRUGS (1)
  1. COMETRIQ [Suspect]
     Active Substance: CABOZANTINIB S-MALATE
     Indication: RENAL CANCER
     Route: 048
     Dates: start: 20140625

REACTIONS (8)
  - Fatigue [None]
  - Suicidal ideation [None]
  - Depression [None]
  - Oral pain [None]
  - Off label use [None]
  - Asthenia [None]
  - Weight decreased [None]
  - Pain in extremity [None]

NARRATIVE: CASE EVENT DATE: 201403
